FAERS Safety Report 8821017 (Version 2)
Quarter: 2013Q2

REPORT INFORMATION
  Report Type: Spontaneous
  Country: US (occurrence: US)
  Receive Date: 20121002
  Receipt Date: 20130514
  Transmission Date: 20140414
  Serious: No
  Sender: FDA-Public Use
  Company Number: US-ASTRAZENECA-2012SE74600

PATIENT
  Age: 62 Year
  Sex: Male
  Weight: 113.9 kg

DRUGS (7)
  1. CRESTOR [Suspect]
     Route: 048
     Dates: start: 20120914
  2. ZIAC HCTZ [Concomitant]
     Indication: CARDIAC DISORDER
  3. ASPIRIN [Concomitant]
     Indication: CARDIAC DISORDER
  4. AMARYL [Concomitant]
     Indication: DIABETES MELLITUS
  5. INDOMETHACIN [Concomitant]
     Indication: GOUT
  6. FUROSEMIDE [Concomitant]
     Indication: SWELLING
  7. FISH OIL [Concomitant]

REACTIONS (4)
  - Local swelling [Not Recovered/Not Resolved]
  - Flatulence [Not Recovered/Not Resolved]
  - Pain in extremity [Unknown]
  - Blood glucose increased [Unknown]
